FAERS Safety Report 13012219 (Version 1)
Quarter: 2016Q4

REPORT INFORMATION
  Report Type: Report from Study
  Country: US (occurrence: US)
  Receive Date: 20161209
  Receipt Date: 20161209
  Transmission Date: 20170207
  Serious: Yes (Other)
  Sender: FDA-Public Use
  Company Number: US-CIPLA LTD.-2016US23072

PATIENT

DRUGS (5)
  1. VITAMIN B12 [Concomitant]
     Active Substance: CYANOCOBALAMIN
     Dosage: 1,000UG, 1 WEEK BEFORE STARTING TREATMENT AND EVERY THREE CYCLES (9 WEEKS)
     Route: 030
  2. FOLIC ACID. [Suspect]
     Active Substance: FOLIC ACID
     Dosage: AT LEAST 400UG/DOSE, 1 WEEK BEFORE TREATMENT
     Route: 065
  3. PEMETREXED [Suspect]
     Active Substance: PEMETREXED
     Indication: OVARIAN CANCER RECURRENT
     Dosage: 500 MG/M2, OVER A 5 TO10 MINUTE BOLUS (ADMINISTERED FIRST)
     Route: 040
  4. DEXAMETHASONE. [Concomitant]
     Active Substance: DEXAMETHASONE
     Indication: PROPHYLAXIS
     Dosage: 4 MG, BID, THE DAY BEFORE, THE DAY OF, AND THE DAY AFTER TREATMENT
     Route: 048
  5. CARBOPLATIN. [Suspect]
     Active Substance: CARBOPLATIN
     Indication: OVARIAN CANCER RECURRENT
     Dosage: AREA UNDER THE CURVE 5 OVER 30 TO 60 MINUTES, EVERY 21 DAYS FOR 6 OR 8 CYCLES
     Route: 042

REACTIONS (1)
  - Neutropenia [Unknown]
